FAERS Safety Report 12255047 (Version 2)
Quarter: 2016Q2

REPORT INFORMATION
  Report Type: Spontaneous
  Country: JP (occurrence: JP)
  Receive Date: 20160411
  Receipt Date: 20160411
  Transmission Date: 20160815
  Serious: Yes (Other)
  Sender: FDA-Public Use
  Company Number: JP-ACTAVIS-2016-07289

PATIENT
  Age: 22 Year
  Sex: Male

DRUGS (4)
  1. CARBOPLATIN (UNKNOWN) [Suspect]
     Active Substance: CARBOPLATIN
     Dosage: AREA UNDER CURVE (AUC) 6, DAY 1, EVERY 3 WEEKS
     Route: 065
  2. CARBOPLATIN (UNKNOWN) [Suspect]
     Active Substance: CARBOPLATIN
     Indication: THYMOMA MALIGNANT
     Dosage: WEEKLY, AREA UNDER CURVE (AUC) 2
     Route: 065
  3. PACLITAXEL (UNKNOWN) [Suspect]
     Active Substance: PACLITAXEL
     Dosage: (DAYS 1, 8 AND 15) EVERY 3 WEEKS
  4. PACLITAXEL (UNKNOWN) [Suspect]
     Active Substance: PACLITAXEL
     Indication: THYMOMA MALIGNANT
     Dosage: WEEKLY, NANOPARTICLE ALBUMIN-BOUND PACLITAXEL
     Route: 065

REACTIONS (1)
  - Neutropenia [Unknown]
